FAERS Safety Report 4706359-X (Version None)
Quarter: 2005Q2

REPORT INFORMATION
  Report Type: 
  Country: None (occurrence: None)
  Receive Date: 20050629
  Receipt Date: 20050411
  Transmission Date: 20051028
  Serious: No
  Sender: FDA-Public Use
  Company Number: 05P-163-0296940-00

PATIENT
  Age: 46 Year
  Sex: Female
  Weight: 89.3586 kg

DRUGS (6)
  1. HUMIRA [Suspect]
     Indication: RHEUMATOID ARTHRITIS
     Dosage: 40 MG, 1 IN 2 WK, SUBCUTANEOUS
     Route: 058
     Dates: start: 20000101
  2. CALCIUM D3 ^STADA^ [Concomitant]
  3. ATENOLOL [Concomitant]
  4. PANTOPRAZOLE [Concomitant]
  5. HYDROCODONE [Concomitant]
  6. ALENDRONATE SODIUM [Concomitant]

REACTIONS (2)
  - ARTHRITIS [None]
  - HEADACHE [None]
